FAERS Safety Report 8367435-6 (Version None)
Quarter: 2012Q2

REPORT INFORMATION
  Report Type: 
  Country: None (occurrence: None)
  Receive Date: 20120517
  Receipt Date: 20120126
  Transmission Date: 20120825
  Serious: No
  Sender: FDA-Public Use
  Company Number: US-GLAXOSMITHKLINE-A0963511A

PATIENT
  Age: 54 Year
  Sex: Female

DRUGS (3)
  1. VOTRIENT [Suspect]
     Indication: RENAL CELL CARCINOMA
     Dosage: 4TAB PER DAY
     Route: 048
     Dates: start: 20111221
  2. MULTIPLE MEDICATIONS [Concomitant]
  3. ANTIBIOTICS [Concomitant]

REACTIONS (1)
  - VOMITING [None]
